FAERS Safety Report 14274678 (Version 1)
Quarter: 2017Q4

REPORT INFORMATION
  Report Type: Report from Study
  Country: US (occurrence: US)
  Receive Date: 20171212
  Receipt Date: 20171212
  Transmission Date: 20180321
  Serious: Yes (Death, Other)
  Sender: FDA-Public Use
  Company Number: US-TAKEDA-2017TJP026553

PATIENT

DRUGS (1)
  1. IXAZOMIB [Suspect]
     Active Substance: IXAZOMIB
     Indication: MYCOSIS FUNGOIDES
     Dosage: 4 MG, UNK
     Route: 048

REACTIONS (3)
  - Respiratory failure [Fatal]
  - Sepsis [Unknown]
  - Impetigo [Unknown]
